FAERS Safety Report 4751373-1 (Version None)
Quarter: 2005Q3

REPORT INFORMATION
  Report Type: 
  Country: None (occurrence: None)
  Receive Date: 20050823
  Receipt Date: 20050823
  Transmission Date: 20060218
  Serious: Yes (Other)
  Sender: FDA-Public Use
  Company Number: None

PATIENT
  Age: 32 Year
  Sex: Male
  Weight: 105.6881 kg

DRUGS (5)
  1. TRAZODONE     50 MG     UNK [Suspect]
     Indication: ANXIETY
     Dosage: 50 MG QHS    QHS   PO
     Route: 048
     Dates: start: 20050316, end: 20050819
  2. TRAZODONE     50 MG     UNK [Suspect]
     Indication: DEPRESSION
     Dosage: 50 MG QHS    QHS   PO
     Route: 048
     Dates: start: 20050316, end: 20050819
  3. LEXAPRO [Concomitant]
  4. FLONASE [Concomitant]
  5. FLEXERIL [Concomitant]

REACTIONS (3)
  - GENITAL PRURITUS MALE [None]
  - PAINFUL ERECTION [None]
  - PENILE SWELLING [None]
